FAERS Safety Report 6564300-1 (Version None)
Quarter: 2010Q1

REPORT INFORMATION
  Report Type: 
  Country: None (occurrence: None)
  Receive Date: 20100201
  Receipt Date: 20090414
  Transmission Date: 20100710
  Serious: Yes (Disabling)
  Sender: FDA-Public Use
  Company Number: US-JNJFOC-20080600250

PATIENT
  Sex: Female

DRUGS (4)
  1. LEVAQUIN [Suspect]
     Indication: KIDNEY INFECTION
  2. LEVAQUIN [Suspect]
  3. LEVAQUIN [Suspect]
     Indication: URINARY TRACT INFECTION
  4. LEVAQUIN [Suspect]

REACTIONS (7)
  - ALOPECIA [None]
  - BURSITIS [None]
  - NEUROPATHY PERIPHERAL [None]
  - PLANTAR FASCIITIS [None]
  - RHEUMATOID ARTHRITIS [None]
  - TENDONITIS [None]
  - TENOSYNOVITIS [None]
